FAERS Safety Report 4811932-4 (Version None)
Quarter: 2005Q4

REPORT INFORMATION
  Report Type: 
  Country: None (occurrence: None)
  Receive Date: 20051028
  Receipt Date: 20041018
  Transmission Date: 20060501
  Serious: No
  Sender: FDA-Public Use
  Company Number: US-GLAXOSMITHKLINE-A0530334A

PATIENT
  Age: 47 Year
  Sex: Female

DRUGS (5)
  1. ADVAIR DISKUS 100/50 [Suspect]
     Route: 055
     Dates: start: 20021001
  2. METHOTREXATE [Concomitant]
  3. CELEBREX [Concomitant]
  4. ENBREL [Concomitant]
  5. NYSTATIN [Concomitant]

REACTIONS (1)
  - CANDIDIASIS [None]
